FAERS Safety Report 17116178 (Version 4)
Quarter: 2020Q3

REPORT INFORMATION
  Report Type: Spontaneous
  Country: US (occurrence: US)
  Receive Date: 20191205
  Receipt Date: 20200717
  Transmission Date: 20201102
  Serious: No
  Sender: FDA-Public Use
  Company Number: US-PFIZER INC-2019523648

PATIENT
  Age: 57 Year
  Sex: Female

DRUGS (2)
  1. CELECOXIB. [Concomitant]
     Active Substance: CELECOXIB
     Indication: PAIN
     Dosage: 100 MG, 2X/DAY (TAKE 1 CAPSULE BY MOUTH TWICE DAILY AS NEEDED)
     Route: 048
  2. ESTRING [Suspect]
     Active Substance: ESTRADIOL
     Indication: ATROPHIC VULVOVAGINITIS
     Dosage: 7.5 UG, DAILY (ESTRING 2 MG(7.5 MCG/ 24 HOUR) VAGINAL RING)
     Route: 067

REACTIONS (2)
  - Neuralgia [Unknown]
  - Pain [Unknown]
